FAERS Safety Report 19325639 (Version 2)
Quarter: 2021Q3

REPORT INFORMATION
  Report Type: Spontaneous
  Country: FR (occurrence: FR)
  Receive Date: 20210528
  Receipt Date: 20210713
  Transmission Date: 20211014
  Serious: Yes (Other)
  Sender: FDA-Public Use
  Company Number: FR-BAYER-2021-146915

PATIENT
  Age: 46 Year
  Sex: Female

DRUGS (1)
  1. MIRENA [Suspect]
     Active Substance: LEVONORGESTREL
     Dosage: 20 ?G PER DAY CONTINUOUSLY
     Route: 015
     Dates: start: 20150930, end: 20210622

REACTIONS (3)
  - Complication of device removal [None]
  - Device breakage [Recovered/Resolved]
  - Device difficult to use [None]

NARRATIVE: CASE EVENT DATE: 20210520
